FAERS Safety Report 5033981-6 (Version None)
Quarter: 2006Q2

REPORT INFORMATION
  Report Type: 
  Country: None (occurrence: None)
  Receive Date: 20060512
  Receipt Date: 20060323
  Transmission Date: 20061013
  Serious: Yes (Other)
  Sender: FDA-Public Use
  Company Number: HQWYE518524MAR06

PATIENT
  Sex: Female

DRUGS (3)
  1. INDERAL LA [Suspect]
     Indication: HYPERTENSION
     Dosage: 240 MG 1X PER 1 DAY, ORAL
     Route: 048
  2. HYDROCHLOROTHIAZIDE [Concomitant]
  3. LISINOPRIL [Concomitant]

REACTIONS (3)
  - DRUG EFFECT DECREASED [None]
  - DRUG WITHDRAWAL SYNDROME [None]
  - PALPITATIONS [None]
